FAERS Safety Report 15487234 (Version 1)
Quarter: 2018Q4

REPORT INFORMATION
  Report Type: Spontaneous
  Country: FR (occurrence: FR)
  Receive Date: 20181011
  Receipt Date: 20181011
  Transmission Date: 20190205
  Serious: Yes (Hospitalization)
  Sender: FDA-Public Use
  Company Number: FR-ROCHE-2196475

PATIENT
  Age: 69 Year
  Sex: Female
  Weight: 70 kg

DRUGS (29)
  1. ALLOPURINOL. [Concomitant]
     Active Substance: ALLOPURINOL
     Route: 048
  2. PREVISCAN (FRANCE) [Concomitant]
     Active Substance: FLUINDIONE
     Route: 048
  3. LANTUS [Concomitant]
     Active Substance: INSULIN GLARGINE
     Route: 048
  4. AMLOR [Concomitant]
     Active Substance: AMLODIPINE BESYLATE
     Route: 048
  5. AMIODARONE [Concomitant]
     Active Substance: AMIODARONE
     Route: 048
  6. ALLOPURINOL. [Concomitant]
     Active Substance: ALLOPURINOL
     Route: 048
  7. ALLOPURINOL. [Concomitant]
     Active Substance: ALLOPURINOL
     Route: 048
  8. ALLOPURINOL. [Concomitant]
     Active Substance: ALLOPURINOL
     Route: 048
  9. FLUDEX (FRANCE) [Concomitant]
     Active Substance: INDAPAMIDE
     Route: 048
  10. PREVISCAN (FRANCE) [Concomitant]
     Active Substance: FLUINDIONE
     Route: 048
  11. LANTUS [Concomitant]
     Active Substance: INSULIN GLARGINE
     Route: 048
  12. APROVEL [Concomitant]
     Active Substance: IRBESARTAN
     Route: 048
  13. APROVEL [Concomitant]
     Active Substance: IRBESARTAN
     Route: 048
  14. APROVEL [Concomitant]
     Active Substance: IRBESARTAN
     Route: 048
  15. AMLOR [Concomitant]
     Active Substance: AMLODIPINE BESYLATE
     Route: 048
  16. AMLOR [Concomitant]
     Active Substance: AMLODIPINE BESYLATE
     Route: 048
  17. XELODA [Suspect]
     Active Substance: CAPECITABINE
     Indication: GALLBLADDER ADENOCARCINOMA
     Dosage: RECENT DOSE ON 23/MAR/2018
     Route: 048
     Dates: start: 20180305
  18. AMIODARONE [Concomitant]
     Active Substance: AMIODARONE
     Route: 048
  19. AMIODARONE [Concomitant]
     Active Substance: AMIODARONE
     Route: 048
  20. AMIODARONE [Concomitant]
     Active Substance: AMIODARONE
     Route: 048
  21. PREVISCAN (FRANCE) [Concomitant]
     Active Substance: FLUINDIONE
     Route: 048
  22. LANTUS [Concomitant]
     Active Substance: INSULIN GLARGINE
     Route: 048
  23. APROVEL [Concomitant]
     Active Substance: IRBESARTAN
     Route: 048
  24. FLUDEX (FRANCE) [Concomitant]
     Active Substance: INDAPAMIDE
     Route: 048
  25. FLUDEX (FRANCE) [Concomitant]
     Active Substance: INDAPAMIDE
     Route: 048
  26. FLUDEX (FRANCE) [Concomitant]
     Active Substance: INDAPAMIDE
     Route: 048
  27. PREVISCAN (FRANCE) [Concomitant]
     Active Substance: FLUINDIONE
     Route: 048
  28. LANTUS [Concomitant]
     Active Substance: INSULIN GLARGINE
     Route: 048
  29. AMLOR [Concomitant]
     Active Substance: AMLODIPINE BESYLATE
     Route: 048

REACTIONS (3)
  - Gastrointestinal obstruction [Recovered/Resolved]
  - Oesophagitis haemorrhagic [Recovered/Resolved]
  - Emphysematous cystitis [Recovering/Resolving]

NARRATIVE: CASE EVENT DATE: 20180324
